FAERS Safety Report 22233587 (Version 1)
Quarter: 2023Q2

REPORT INFORMATION
  Report Type: Spontaneous
  Country: US (occurrence: None)
  Receive Date: 20230420
  Receipt Date: 20230420
  Transmission Date: 20230722
  Serious: No
  Sender: FDA-Public Use
  Company Number: US-ROCHE-3073431

PATIENT
  Sex: Male

DRUGS (1)
  1. ESBRIET [Suspect]
     Active Substance: PIRFENIDONE
     Indication: Idiopathic pulmonary fibrosis
     Dosage: TITRATING SLOWLY (STARTED BACK ON ONE CAPSULE 3 TIMES DAILY AND HAS BUILT UP TO CURRENT DOSE OF 2 CA
     Route: 048
     Dates: start: 20220408

REACTIONS (1)
  - Abdominal pain upper [Unknown]
